FAERS Safety Report 4273958-1 (Version None)
Quarter: 2004Q1

REPORT INFORMATION
  Report Type: 
  Country: None (occurrence: None)
  Receive Date: 20040115
  Receipt Date: 20040105
  Transmission Date: 20041129
  Serious: Yes (Other)
  Sender: FDA-Public Use
  Company Number: 2003151965CH

PATIENT
  Age: 70 Year
  Sex: Male

DRUGS (1)
  1. GENOTROPIN [Suspect]
     Indication: HYPOPITUITARISM
     Dates: start: 20000125

REACTIONS (3)
  - METASTATIC MALIGNANT MELANOMA [None]
  - PARANEOPLASTIC SYNDROME [None]
  - THROMBOSIS [None]
